FAERS Safety Report 9259126 (Version 2)
Quarter: 2013Q2

REPORT INFORMATION
  Report Type: Spontaneous
  Country: JP (occurrence: JP)
  Receive Date: 20130426
  Receipt Date: 20130510
  Transmission Date: 20140414
  Serious: Yes (Death, Life-Threatening)
  Sender: FDA-Public Use
  Company Number: JP-PFIZER INC-2013131033

PATIENT
  Age: 37 Year
  Sex: Female

DRUGS (25)
  1. TAKEPRON [Suspect]
     Indication: PROPHYLAXIS AGAINST GASTROINTESTINAL ULCER
     Dosage: 30 MG, 1X/DAY
     Route: 042
     Dates: start: 20111106, end: 20111212
  2. SOLU-CORTEF [Suspect]
     Indication: PREMEDICATION
     Dosage: 200 MG, 1 D
     Dates: start: 20111109, end: 20111109
  3. METHOTREXATE [Suspect]
     Indication: PROPHYLAXIS AGAINST GRAFT VERSUS HOST DISEASE
     Dosage: 20 MG, 1D
     Route: 042
     Dates: start: 20111110, end: 20111110
  4. METHOTREXATE [Suspect]
     Dosage: 14 MG, 1 IN 1 D
     Dates: start: 20111112, end: 20111112
  5. METHOTREXATE [Suspect]
     Dosage: 14 MG, 1 IN 1 D
     Route: 042
     Dates: start: 20111115, end: 20111115
  6. MORPHINE HYDROCHLORIDE [Suspect]
     Indication: PAIN
     Dosage: UNK
     Route: 042
     Dates: start: 20111113, end: 20111127
  7. PRIMPERAN [Suspect]
     Indication: NAUSEA
     Dosage: 10 MG, 2X/DAY
     Route: 042
     Dates: start: 20111105, end: 20111108
  8. LASIX [Suspect]
     Indication: DIURETIC THERAPY
     Dosage: 20 MG, 1X/DAY
     Route: 042
     Dates: start: 20111109, end: 20111109
  9. CALCIUM FOLINATE [Suspect]
     Indication: PROPHYLAXIS
     Dosage: UNK
     Route: 042
     Dates: start: 20111113, end: 20111127
  10. UROMITEXAN [Suspect]
     Indication: PROPHYLAXIS
     Dosage: 400 MG, 3X/DAY
     Route: 042
     Dates: start: 20111105, end: 20111106
  11. CEFEPIME HYDROCHLORIDE [Suspect]
     Indication: INFECTION
     Dosage: 2 MG, 2X/DAY
     Route: 042
     Dates: start: 20111111, end: 20111226
  12. ENDOXAN [Suspect]
     Indication: PREMEDICATION
     Dosage: 2700 MG, 1 D
     Route: 042
     Dates: start: 20111105, end: 20111106
  13. MAGNESIUM SULFATE [Suspect]
     Indication: PROPHYLAXIS
     Dosage: 1 MEQ, 1 D
     Route: 042
     Dates: start: 20111116, end: 20120130
  14. PROGRAF [Suspect]
     Indication: PROPHYLAXIS AGAINST GRAFT VERSUS HOST DISEASE
     Dosage: 1 D
     Route: 041
     Dates: start: 20111108, end: 20111119
  15. VANCOMYCIN [Suspect]
     Indication: INFECTION
     Dosage: 1 MG, 2X/DAY
     Route: 042
     Dates: start: 20111115, end: 20111121
  16. ACICLOVIR [Suspect]
     Indication: PROPHYLAXIS
     Dosage: 250 MG, 1D
     Dates: start: 20111108, end: 20111212
  17. SEROTONE [Suspect]
     Indication: NAUSEA
     Dosage: 5 MG, 2X/DAY
     Route: 042
     Dates: start: 20111105, end: 20111106
  18. FUNGUARD [Suspect]
     Indication: INFECTION PROPHYLAXIS
     Dosage: 50 MG, 1 DAILY
     Route: 042
     Dates: start: 20111104, end: 20111229
  19. MEYLON [Suspect]
     Indication: ELECTROLYTE IMBALANCE
     Dosage: 5 ML, 1 D
     Route: 042
     Dates: start: 20111104, end: 20111108
  20. FRAGMIN [Suspect]
     Indication: PROPHYLAXIS
     Dosage: 500 IU, 1 D
     Route: 042
     Dates: start: 20111029, end: 20111217
  21. ASPARA POTASSIUM [Suspect]
     Indication: HYPOKALAEMIA
     Dosage: 10 MEQ, 2X/DAY
     Route: 042
     Dates: start: 20111109, end: 20111227
  22. GRAN [Suspect]
     Indication: PROPHYLAXIS
     Dosage: 450 UG, 1D
     Route: 042
     Dates: start: 20111114, end: 20111123
  23. CALONAL [Concomitant]
     Dosage: UNK
     Dates: start: 20111110, end: 20111110
  24. CYLOCIDE [Concomitant]
     Dosage: UNK
     Dates: start: 20111109
  25. ELNEOPA [Concomitant]

REACTIONS (1)
  - Posterior reversible encephalopathy syndrome [Fatal]
